FAERS Safety Report 25820831 (Version 1)
Quarter: 2025Q3

REPORT INFORMATION
  Report Type: Spontaneous
  Country: CA (occurrence: CA)
  Receive Date: 20250919
  Receipt Date: 20250919
  Transmission Date: 20251021
  Serious: Yes (Hospitalization)
  Sender: AUROBINDO
  Company Number: CA-AUROBINDO-AUR-APL-2025-047288

PATIENT
  Age: 38 Year
  Sex: Male

DRUGS (1)
  1. ACYCLOVIR [Suspect]
     Active Substance: ACYCLOVIR
     Indication: Product used for unknown indication
     Dosage: 2 GRAM, TWO TIMES A DAY
     Route: 042

REACTIONS (3)
  - Agitation [Recovering/Resolving]
  - Endotracheal intubation [Recovering/Resolving]
  - Wrong patient received product [Recovering/Resolving]
